FAERS Safety Report 5345394-8 (Version None)
Quarter: 2007Q2

REPORT INFORMATION
  Report Type: 
  Country: None (occurrence: None)
  Receive Date: 20070601
  Receipt Date: 20070518
  Transmission Date: 20071010
  Serious: Yes (Other)
  Sender: FDA-Public Use
  Company Number: CAP07000224

PATIENT
  Age: 79 Year
  Sex: Female

DRUGS (7)
  1. ETIDRONATE DISODIUM [Suspect]
     Indication: OSTEOPOROSIS
     Dosage: 1 TABLET, 1 /DAY, ORAL
     Route: 048
     Dates: start: 19970101
  2. GLUCOSAMINE SULFATE (GLUCOSAMINE SULFATE) [Concomitant]
  3. APO-AMOXI (AMOXICILLIN TRIHYDRATE) [Concomitant]
  4. VITAMIN D /00107901/ (ERGOCALCIFEROL) [Concomitant]
  5. DOMPERIDONE (DOMPERIDONE) [Concomitant]
  6. RABEPRAZOLE SODIUM [Concomitant]
  7. SENOKOT-S (SENNA ALEXANDRINA, DOCUSATE SODIUM) [Concomitant]

REACTIONS (4)
  - HYPERTENSION [None]
  - NO THERAPEUTIC RESPONSE [None]
  - RETINAL DETACHMENT [None]
  - WRONG TECHNIQUE IN DRUG USAGE PROCESS [None]
